FAERS Safety Report 6386215-4 (Version None)
Quarter: 2009Q4

REPORT INFORMATION
  Report Type: 
  Country: None (occurrence: None)
  Receive Date: 20091002
  Receipt Date: 20090924
  Transmission Date: 20100525
  Serious: Yes (Other)
  Sender: FDA-Public Use
  Company Number: US-KINGPHARMUSA00001-K200901202

PATIENT
  Sex: Female

DRUGS (1)
  1. SEPTRA [Suspect]
     Dosage: UNK, SINGLE

REACTIONS (9)
  - CONVULSION [None]
  - DIZZINESS [None]
  - DYSKINESIA [None]
  - DYSPHAGIA [None]
  - FEELING HOT [None]
  - HYPERHIDROSIS [None]
  - HYPOAESTHESIA [None]
  - MUSCLE SPASMS [None]
  - VISION BLURRED [None]
